FAERS Safety Report 11143952 (Version 1)
Quarter: 2015Q2

REPORT INFORMATION
  Report Type: Report from Study
  Country: US (occurrence: US)
  Receive Date: 20150528
  Receipt Date: 20150528
  Transmission Date: 20150821
  Serious: Yes (Death)
  Sender: FDA-Public Use
  Company Number: US-TEVA-565369USA

PATIENT
  Age: 64 Year
  Sex: Male
  Weight: 96 kg

DRUGS (2)
  1. TREANDA [Suspect]
     Active Substance: BENDAMUSTINE HYDROCHLORIDE
     Indication: LYMPHOMA
     Dosage: 774MG TOTAL
     Route: 042
     Dates: start: 20150317, end: 20150414
  2. RITUXIMAB [Suspect]
     Active Substance: RITUXIMAB
     Dosage: 1600 MG TOTAL
     Route: 042
     Dates: start: 20150317, end: 20150413

REACTIONS (1)
  - Death [Fatal]
